FAERS Safety Report 7340453-2 (Version None)
Quarter: 2011Q1

REPORT INFORMATION
  Report Type: 
  Country: None (occurrence: None)
  Receive Date: 20110309
  Receipt Date: 20110210
  Transmission Date: 20110831
  Serious: No
  Sender: FDA-Public Use
  Company Number: US-B.I. PHARMACEUTICALS,INC./RIDGEFIELD-2011-BP-05566BP

PATIENT
  Age: 88 Year
  Sex: Male

DRUGS (10)
  1. COREG [Concomitant]
     Dosage: 12.5 MG
  2. POTASSIUM [Concomitant]
     Dosage: 20 MEQ
  3. SINEMET [Concomitant]
  4. PRADAXA [Suspect]
     Indication: ATRIAL FIBRILLATION
     Dosage: 300 MG
     Route: 048
     Dates: start: 20110203, end: 20110208
  5. LIPITOR [Concomitant]
     Dosage: 20 MG
  6. ALLOPURINOL [Concomitant]
  7. PRANDIN [Concomitant]
  8. QUINAPRIL [Concomitant]
     Dosage: 20 MG
  9. LASIX [Concomitant]
     Dosage: 40 MG
  10. AZILECT [Concomitant]

REACTIONS (3)
  - DYSPHAGIA [None]
  - ABDOMINAL DISCOMFORT [None]
  - BACK PAIN [None]
